FAERS Safety Report 10234349 (Version 1)
Quarter: 2014Q2

REPORT INFORMATION
  Report Type: Spontaneous
  Country: US (occurrence: US)
  Receive Date: 20140612
  Receipt Date: 20140612
  Transmission Date: 20141212
  Serious: Yes (Hospitalization)
  Sender: FDA-Public Use
  Company Number: US-AMGEN INC.-USASP2014043726

PATIENT
  Age: 55 Year
  Sex: Female

DRUGS (1)
  1. ENBREL [Suspect]
     Indication: PSORIASIS
     Dosage: 50 MG, QWK
     Route: 065
     Dates: end: 201404

REACTIONS (7)
  - Speech disorder [Recovered/Resolved]
  - Confusional state [Not Recovered/Not Resolved]
  - Gastroenteritis salmonella [Recovered/Resolved]
  - Escherichia infection [Recovered/Resolved]
  - Ammonia increased [Not Recovered/Not Resolved]
  - Liver disorder [Not Recovered/Not Resolved]
  - Skin plaque [Not Recovered/Not Resolved]
